FAERS Safety Report 15517789 (Version 1)
Quarter: 2018Q4

REPORT INFORMATION
  Report Type: Spontaneous
  Country: US (occurrence: US)
  Receive Date: 20181011
  Receipt Date: 20181011
  Transmission Date: 20190205
  Serious: No
  Sender: FDA-Public Use
  Company Number: None

PATIENT
  Age: 66 Year
  Sex: Male

DRUGS (1)
  1. ZYTIGA [Suspect]
     Active Substance: ABIRATERONE ACETATE
     Dates: start: 201801

REACTIONS (3)
  - Gastrooesophageal reflux disease [None]
  - Hyperhidrosis [None]
  - Hot flush [None]

NARRATIVE: CASE EVENT DATE: 20181010
